FAERS Safety Report 25859773 (Version 2)
Quarter: 2025Q4

REPORT INFORMATION
  Report Type: Spontaneous
  Country: US (occurrence: US)
  Receive Date: 20250929
  Receipt Date: 20251014
  Transmission Date: 20260117
  Serious: No
  Sender: TAKEDA
  Company Number: US-TAKEDA-2025TUS083839

PATIENT
  Age: 7 Year
  Sex: Female
  Weight: 18 kg

DRUGS (6)
  1. GATTEX [Suspect]
     Active Substance: TEDUGLUTIDE\WATER
     Indication: Short-bowel syndrome
     Dosage: UNK UNK, QD
     Dates: start: 2022
  2. GATTEX [Suspect]
     Active Substance: TEDUGLUTIDE\WATER
     Indication: Functional gastrointestinal disorder
     Dosage: 0.9 MILLIGRAM, QD
  3. GATTEX [Suspect]
     Active Substance: TEDUGLUTIDE\WATER
     Indication: Parenteral nutrition
  4. GATTEX [Suspect]
     Active Substance: TEDUGLUTIDE\WATER
  5. BUDESONIDE [Concomitant]
     Active Substance: BUDESONIDE
     Indication: Anastomotic ulcer
     Dosage: 1 MILLIGRAM, BID
  6. IRON [Concomitant]
     Active Substance: IRON
     Indication: Anaemia
     Dosage: 75 MILLIGRAM, BID

REACTIONS (1)
  - Injection site reaction [Recovered/Resolved with Sequelae]

NARRATIVE: CASE EVENT DATE: 20250917
